FAERS Safety Report 12481253 (Version 1)
Quarter: 2016Q2

REPORT INFORMATION
  Report Type: Spontaneous
  Country: DE (occurrence: DE)
  Receive Date: 20160620
  Receipt Date: 20160620
  Transmission Date: 20160815
  Serious: Yes (Hospitalization, Congenital Anomaly, Other)
  Sender: FDA-Public Use
  Company Number: DE-JNJFOC-20160614055

PATIENT
  Age: 1 Day
  Sex: Male
  Weight: 2.47 kg

DRUGS (5)
  1. VITAVERAN B12 CIP [Concomitant]
     Indication: PROPHYLAXIS OF NEURAL TUBE DEFECT
     Route: 064
  2. OLANZAPINE. [Suspect]
     Active Substance: OLANZAPINE
     Indication: SCHIZOPHRENIA
     Dosage: 1 TRIMESTER, THROUGHOUT PREGNANCY
     Route: 064
     Dates: start: 20141222, end: 20150908
  3. PAROXETINE. [Suspect]
     Active Substance: PAROXETINE
     Indication: SCHIZOPHRENIA
     Dosage: 1 TRIMESTER
     Route: 064
     Dates: start: 20141222, end: 20150302
  4. RISPERIDON [Suspect]
     Active Substance: RISPERIDONE
     Indication: SCHIZOPHRENIA
     Dosage: 1 TRIMESTER, THROUGHOUT PREGNANCY
     Route: 064
     Dates: start: 20141222, end: 20150908
  5. SERTRALINE [Suspect]
     Active Substance: SERTRALINE HYDROCHLORIDE
     Indication: SCHIZOPHRENIA
     Dosage: THROUGHOUT PREGNANCY
     Route: 064
     Dates: start: 20150303, end: 20150908

REACTIONS (5)
  - Ventricular septal defect [Recovered/Resolved]
  - Atrial septal defect [Not Recovered/Not Resolved]
  - Foetal exposure during pregnancy [Unknown]
  - Small for dates baby [Recovering/Resolving]
  - Drug withdrawal syndrome neonatal [Recovered/Resolved]

NARRATIVE: CASE EVENT DATE: 20150908
